FAERS Safety Report 18594861 (Version 1)
Quarter: 2020Q4

REPORT INFORMATION
  Report Type: Spontaneous
  Country: US (occurrence: US)
  Receive Date: 20201209
  Receipt Date: 20201209
  Transmission Date: 20210114
  Serious: Yes (Other)
  Sender: FDA-Public Use
  Company Number: US-PFIZER INC-2020363246

PATIENT
  Age: 19 Year
  Sex: Male

DRUGS (2)
  1. DEPO-PROVERA [Suspect]
     Active Substance: MEDROXYPROGESTERONE ACETATE
     Indication: ERECTION INCREASED
     Dosage: 3 ML, (EVERY 2 WEEKS)
     Route: 030
  2. DEPO-PROVERA [Suspect]
     Active Substance: MEDROXYPROGESTERONE ACETATE
     Indication: SEXUAL DYSFUNCTION

REACTIONS (5)
  - Product use issue [Unknown]
  - Drug effective for unapproved indication [Unknown]
  - Mental impairment [Unknown]
  - Product use in unapproved indication [Unknown]
  - Off label use [Unknown]
